FAERS Safety Report 10455573 (Version 3)
Quarter: 2015Q1

REPORT INFORMATION
  Report Type: Spontaneous
  Country: US (occurrence: US)
  Receive Date: 20140916
  Receipt Date: 20150316
  Transmission Date: 20150720
  Serious: No
  Sender: FDA-Public Use
  Company Number: US-ASTELLAS-2014US008223

PATIENT
  Sex: Male

DRUGS (1)
  1. XTANDI [Suspect]
     Active Substance: ENZALUTAMIDE
     Indication: PRODUCT USED FOR UNKNOWN INDICATION
     Route: 065
     Dates: start: 20140615

REACTIONS (14)
  - Decreased appetite [Unknown]
  - Product size issue [Unknown]
  - Productive cough [Unknown]
  - Heart rate irregular [Recovered/Resolved]
  - Dysgeusia [Unknown]
  - Ageusia [Unknown]
  - Chest pain [Recovered/Resolved]
  - Abdominal discomfort [Unknown]
  - Drug dose omission [Unknown]
  - Gastrointestinal disorder [Unknown]
  - Weight decreased [Unknown]
  - Secretion discharge [Unknown]
  - Dysphagia [Unknown]
  - Pruritus [Unknown]

NARRATIVE: CASE EVENT DATE: 2014
